FAERS Safety Report 17213236 (Version 2)
Quarter: 2022Q1

REPORT INFORMATION
  Report Type: Spontaneous
  Country: CH (occurrence: CH)
  Receive Date: 20191230
  Receipt Date: 20220203
  Transmission Date: 20220423
  Serious: Yes (Life-Threatening, Hospitalization, Other)
  Sender: FDA-Public Use
  Company Number: CH-SM-2019-18256

PATIENT
  Age: 77 Year
  Sex: Female

DRUGS (18)
  1. AMOXICILLIN\CLAVULANATE POTASSIUM [Suspect]
     Active Substance: AMOXICILLIN\CLAVULANATE POTASSIUM
     Indication: Tenosynovitis
     Dosage: 1875 MILLIGRAM DAILY;
     Route: 048
     Dates: start: 20190904, end: 20190907
  2. AMOXICILLIN\CLAVULANATE POTASSIUM [Suspect]
     Active Substance: AMOXICILLIN\CLAVULANATE POTASSIUM
     Dosage: 1875 MILLIGRAM DAILY;
     Route: 048
     Dates: start: 20190916, end: 20190917
  3. CLINDAMYCIN [Suspect]
     Active Substance: CLINDAMYCIN
     Indication: Tenosynovitis
     Dosage: 900 MILLIGRAM DAILY;
     Route: 048
     Dates: start: 20190917, end: 20190922
  4. METHOTREXATE [Suspect]
     Active Substance: METHOTREXATE
     Dosage: 2.5 TABLETS EACH THURSDAY
     Route: 048
     Dates: end: 20190927
  5. EUTHYROX [Concomitant]
     Active Substance: LEVOTHYROXINE SODIUM
     Dosage: .075 MILLIGRAM DAILY;
     Route: 048
  6. PHENPROCOUMON [Concomitant]
     Active Substance: PHENPROCOUMON
     Dosage: 3 MILLIGRAM DAILY; IN ACCORDANCE WITH THE INR
     Route: 048
     Dates: end: 20190927
  7. METOPROLOL SUCCINATE [Concomitant]
     Active Substance: METOPROLOL SUCCINATE
     Dosage: 12.5 MILLIGRAM DAILY;
     Route: 048
  8. Furospir 50mg/20mg [Concomitant]
     Dosage: .5 DOSAGE FORMS DAILY;
     Route: 048
  9. TIZANIDINE [Concomitant]
     Active Substance: TIZANIDINE
     Dosage: AS NECESSARY
     Route: 048
     Dates: end: 20190924
  10. FOLIC ACID [Concomitant]
     Active Substance: FOLIC ACID
     Dosage: EACH WEDNESDAY AND FRIDAY
     Route: 048
     Dates: end: 20190927
  11. LYRICA [Concomitant]
     Active Substance: PREGABALIN
     Dosage: 200 MILLIGRAM DAILY;
     Route: 048
  12. ESOMEPRAZOLE MAGNESIUM [Concomitant]
     Active Substance: ESOMEPRAZOLE MAGNESIUM
     Dosage: 40 MILLIGRAM DAILY;
     Route: 048
  13. BUPRENORPHINE HYDROCHLORIDE [Concomitant]
     Active Substance: BUPRENORPHINE HYDROCHLORIDE
     Dosage: AS NECESSARY
     Route: 060
     Dates: end: 20190927
  14. ZOLPIDEM TARTRATE [Concomitant]
     Active Substance: ZOLPIDEM TARTRATE
     Dosage: AS NECESSARY
     Route: 048
     Dates: end: 20190927
  15. MAGNEGON [Concomitant]
     Dosage: AS NECESSARY
     Route: 048
     Dates: end: 20190924
  16. Aldara 5% [Concomitant]
     Dosage: 5X PER WEEK BEFORE BED-TIME, FOR 8 WEEKS IN TOTAL
     Route: 061
     Dates: start: 201811, end: 20191124
  17. HYALURONATE SODIUM [Concomitant]
     Active Substance: HYALURONATE SODIUM
     Dosage: AS NECESSARY
     Route: 047
     Dates: end: 20190927
  18. Bepanthen 5% [Concomitant]
     Dosage: AS NECESSARY
     Route: 061
     Dates: end: 20190927

REACTIONS (2)
  - Acute generalised exanthematous pustulosis [Recovering/Resolving]
  - Pancytopenia [Recovering/Resolving]

NARRATIVE: CASE EVENT DATE: 20190923
